FAERS Safety Report 24931832 (Version 1)
Quarter: 2025Q1

REPORT INFORMATION
  Report Type: Spontaneous
  Country: CH (occurrence: CH)
  Receive Date: 20250205
  Receipt Date: 20250205
  Transmission Date: 20250409
  Serious: No
  Sender: EXELIXIS
  Company Number: CH-BRISTOL-MYERS SQUIBB COMPANY-2024-102353

PATIENT

DRUGS (18)
  1. CABOMETYX [Suspect]
     Active Substance: CABOZANTINIB S-MALATE
     Indication: Renal cell carcinoma
  2. OPDIVO [Suspect]
     Active Substance: NIVOLUMAB
     Indication: Renal cell carcinoma
     Dates: start: 20230508
  3. OPDIVO [Suspect]
     Active Substance: NIVOLUMAB
     Dates: start: 20230522
  4. OPDIVO [Suspect]
     Active Substance: NIVOLUMAB
     Dates: start: 20230605
  5. OPDIVO [Suspect]
     Active Substance: NIVOLUMAB
     Dates: start: 20230616
  6. OPDIVO [Suspect]
     Active Substance: NIVOLUMAB
     Dates: start: 20230619
  7. OPDIVO [Suspect]
     Active Substance: NIVOLUMAB
     Dates: start: 20230706
  8. OPDIVO [Suspect]
     Active Substance: NIVOLUMAB
     Dates: start: 20230724
  9. OPDIVO [Suspect]
     Active Substance: NIVOLUMAB
     Dates: start: 20230807
  10. OPDIVO [Suspect]
     Active Substance: NIVOLUMAB
     Dates: start: 20230821
  11. OPDIVO [Suspect]
     Active Substance: NIVOLUMAB
     Dates: start: 20230713
  12. OPDIVO [Suspect]
     Active Substance: NIVOLUMAB
     Dates: start: 20230602
  13. OPDIVO [Suspect]
     Active Substance: NIVOLUMAB
     Dates: start: 20230324
  14. OPDIVO [Suspect]
     Active Substance: NIVOLUMAB
     Dates: start: 20230629
  15. OPDIVO [Suspect]
     Active Substance: NIVOLUMAB
     Dates: start: 20230421
  16. OPDIVO [Suspect]
     Active Substance: NIVOLUMAB
     Dates: start: 20230519
  17. OPDIVO [Suspect]
     Active Substance: NIVOLUMAB
     Dates: start: 20230505
  18. OPDIVO [Suspect]
     Active Substance: NIVOLUMAB
     Dates: start: 20230407

REACTIONS (1)
  - Off label use [Unknown]
